FAERS Safety Report 21686422 (Version 2)
Quarter: 2023Q2

REPORT INFORMATION
  Report Type: Spontaneous
  Country: US (occurrence: US)
  Receive Date: 20221206
  Receipt Date: 20230405
  Transmission Date: 20230722
  Serious: Yes (Other)
  Sender: FDA-Public Use
  Company Number: US-BRISTOL-MYERS SQUIBB COMPANY-2022-146305

PATIENT
  Age: 70 Year
  Sex: Female
  Weight: 71.21 kg

DRUGS (3)
  1. REVLIMID [Suspect]
     Active Substance: LENALIDOMIDE
     Indication: Plasma cell myeloma
     Dosage: EVERY DAY FOR 21 DAYS ON AND 7 DAYS OFF
     Route: 048
     Dates: end: 20221108
  2. REVLIMID [Suspect]
     Active Substance: LENALIDOMIDE
     Route: 048
  3. VELCADE [Concomitant]
     Active Substance: BORTEZOMIB
     Indication: Product used for unknown indication

REACTIONS (2)
  - Diarrhoea [Unknown]
  - Neuropathy peripheral [Unknown]

NARRATIVE: CASE EVENT DATE: 20221108
